FAERS Safety Report 5343941-3 (Version None)
Quarter: 2007Q2

REPORT INFORMATION
  Report Type: 
  Country: None (occurrence: None)
  Receive Date: 20070531
  Receipt Date: 20070531
  Transmission Date: 20071010
  Serious: Yes (Disabling, Other)
  Sender: FDA-Public Use
  Company Number: None

PATIENT
  Age: 23 Year
  Sex: Female
  Weight: 58.0604 kg

DRUGS (1)
  1. CREST PRO-HEALTH RINSE STANDARD-BLUE LIQUID CREST [Suspect]
     Indication: DENTAL DISORDER PROPHYLAXIS
     Dosage: 2 TABLESPOONS  TWICE A DAY PO
     Route: 048
     Dates: start: 20070216

REACTIONS (1)
  - TOOTH DISCOLOURATION [None]
